FAERS Safety Report 4812630-3 (Version None)
Quarter: 2005Q4

REPORT INFORMATION
  Report Type: 
  Country: None (occurrence: None)
  Receive Date: 20051028
  Receipt Date: 20041103
  Transmission Date: 20060501
  Serious: No
  Sender: FDA-Public Use
  Company Number: US-GLAXOSMITHKLINE-A0532520A

PATIENT
  Age: 43 Year
  Sex: Female

DRUGS (3)
  1. ADVAIR DISKUS 100/50 [Suspect]
     Indication: ASTHMA
     Dates: start: 20031001
  2. ALBUTEROL [Concomitant]
     Route: 055
  3. SINGULAIR [Concomitant]

REACTIONS (5)
  - DYSGEUSIA [None]
  - DYSPNOEA [None]
  - HEADACHE [None]
  - PAROSMIA [None]
  - PHARMACEUTICAL PRODUCT COMPLAINT [None]
